FAERS Safety Report 17108936 (Version 1)
Quarter: 2019Q4

REPORT INFORMATION
  Report Type: Spontaneous
  Country: US (occurrence: US)
  Receive Date: 20191203
  Receipt Date: 20191203
  Transmission Date: 20200122
  Serious: No
  Sender: FDA-Public Use
  Company Number: US-PERRIGO-19US003077

PATIENT
  Age: 69 Year
  Sex: Male
  Weight: 83.9 kg

DRUGS (5)
  1. ASPIRIN                            /00002701/ [Concomitant]
     Active Substance: ASPIRIN
     Indication: PROPHYLAXIS
     Dosage: UNK
     Route: 065
  2. BACITRACIN. [Suspect]
     Active Substance: BACITRACIN
     Dosage: UNKNOWN, THREE TIMES
     Route: 047
     Dates: start: 20190305, end: 20190305
  3. VITAMINS NOS [Concomitant]
     Active Substance: VITAMINS
     Indication: PROPHYLAXIS
     Dosage: UNK
     Route: 065
  4. NIASPAN [Concomitant]
     Active Substance: NIACIN
     Indication: BLOOD CHOLESTEROL INCREASED
     Dosage: UNK
     Route: 065
  5. BACITRACIN. [Suspect]
     Active Substance: BACITRACIN
     Indication: HORDEOLUM
     Dosage: UNKNOWN, TWICE
     Route: 047
     Dates: start: 20190304, end: 20190304

REACTIONS (4)
  - Hypersensitivity [Not Recovered/Not Resolved]
  - Ocular hyperaemia [Not Recovered/Not Resolved]
  - Eye pruritus [Not Recovered/Not Resolved]
  - Eye discharge [Not Recovered/Not Resolved]

NARRATIVE: CASE EVENT DATE: 20190305
